FAERS Safety Report 6692002-X (Version None)
Quarter: 2010Q2

REPORT INFORMATION
  Report Type: 
  Country: None (occurrence: None)
  Receive Date: 20100419
  Receipt Date: 20100209
  Transmission Date: 20101027
  Serious: Yes (Other)
  Sender: FDA-Public Use
  Company Number: 390001M10PRT

PATIENT
  Age: 29 Year
  Sex: Female
  Weight: 75 kg

DRUGS (3)
  1. CETROTIDE [Suspect]
     Dosage: 1, 1 IN 1 D, SUBCUTANEOUS
     Route: 058
     Dates: start: 20100111, end: 20100111
  2. GONAL-F [Suspect]
     Indication: OVARIAN HYPERSTIMULATION SYNDROME
     Dosage: 300 IU, 1 IN 1 D, SUBCUTANEOUS
     Route: 058
     Dates: start: 20100105, end: 20100112
  3. MENOPUR [Concomitant]

REACTIONS (3)
  - HYPOTENSION [None]
  - NAUSEA [None]
  - VOMITING [None]
